FAERS Safety Report 5792054-5 (Version None)
Quarter: 2008Q2

REPORT INFORMATION
  Report Type: 
  Country: None (occurrence: None)
  Receive Date: 20080626
  Receipt Date: 20080625
  Transmission Date: 20081010
  Serious: Yes (Life-Threatening, Hospitalization, Other)
  Sender: FDA-Public Use
  Company Number: PHHY2008JP08478

PATIENT
  Sex: Female
  Weight: 50 kg

DRUGS (4)
  1. VOLTAREN [Suspect]
     Indication: TONSILLITIS
     Dosage: 50 MG
     Route: 054
     Dates: start: 20080518, end: 20080518
  2. LOXONIN [Suspect]
     Indication: ANTIPYRESIS
     Dosage: 60 MG
     Dates: start: 20080518, end: 20080518
  3. CEFZON [Suspect]
     Indication: ACUTE TONSILLITIS
     Dosage: 100 MG
     Route: 048
     Dates: start: 20080518, end: 20080518
  4. SELBEX [Suspect]
     Indication: GASTRITIS EROSIVE
     Dosage: 50 MG
     Route: 048
     Dates: start: 20080518, end: 20080518

REACTIONS (19)
  - ALANINE AMINOTRANSFERASE INCREASED [None]
  - ASPARTATE AMINOTRANSFERASE INCREASED [None]
  - BIOPSY SKIN [None]
  - CONJUNCTIVAL HYPERAEMIA [None]
  - DYSPNOEA [None]
  - ENDOTRACHEAL INTUBATION [None]
  - GASTROINTESTINAL MUCOSAL NECROSIS [None]
  - LIP SWELLING [None]
  - LYMPHOCYTE COUNT DECREASED [None]
  - NIKOLSKY'S SIGN [None]
  - OEDEMA [None]
  - PCO2 DECREASED [None]
  - PHARYNGEAL OEDEMA [None]
  - PLATELET COUNT DECREASED [None]
  - PO2 DECREASED [None]
  - PYREXIA [None]
  - TOXIC EPIDERMAL NECROLYSIS [None]
  - TRACHEAL STENOSIS [None]
  - WHITE BLOOD CELL COUNT INCREASED [None]
